FAERS Safety Report 8102778 (Version 6)
Quarter: 2012Q4

REPORT INFORMATION
  Report Type: 
  Country: US (occurrence: US)
  Receive Date: 20110823
  Receipt Date: 20121203
  Transmission Date: 20130627
  Serious: Yes (Hospitalization, Other)
  Sender: FDA-Public Use
  Company Number: US-ASTRAZENECA-2011SE49221

PATIENT
  Age: 74 Year
  Sex: Male

DRUGS (2)
  1. SYMBICORT PMDI [Suspect]
     Dosage: 160/4.5 MCG, DAILY
     Route: 055
  2. NEXIUM [Suspect]
     Route: 048

REACTIONS (8)
  - Asthma [Unknown]
  - Adverse event [Unknown]
  - Neoplasm malignant [Unknown]
  - Nasopharyngitis [Unknown]
  - Dyspnoea [Unknown]
  - Malaise [Unknown]
  - Abdominal pain upper [Unknown]
  - Intentional drug misuse [Unknown]
